FAERS Safety Report 25240275 (Version 1)
Quarter: 2025Q2

REPORT INFORMATION
  Report Type: Spontaneous
  Country: US (occurrence: US)
  Receive Date: 20250425
  Receipt Date: 20250425
  Transmission Date: 20250717
  Serious: Yes (Other)
  Sender: BAYER HEALTHCARE LLC
  Company Number: US-BAYER-2025A056767

PATIENT
  Age: 66 Year
  Sex: Female

DRUGS (2)
  1. ASPIRIN [Interacting]
     Active Substance: ASPIRIN
  2. CLOPIDOGREL [Suspect]
     Active Substance: CLOPIDOGREL BISULFATE

REACTIONS (3)
  - Haematochezia [None]
  - Gastric haemorrhage [None]
  - Anaemia [None]
